FAERS Safety Report 22115600 (Version 1)
Quarter: 2023Q1

REPORT INFORMATION
  Report Type: Spontaneous
  Country: US (occurrence: US)
  Receive Date: 20230320
  Receipt Date: 20230320
  Transmission Date: 20230417
  Serious: No
  Sender: FDA-Public Use
  Company Number: US-AMNEAL PHARMACEUTICALS-2022-AMRX-00449

PATIENT
  Sex: Female

DRUGS (3)
  1. RILUZOLE [Suspect]
     Active Substance: RILUZOLE
     Indication: Product used for unknown indication
     Dosage: UNK
     Route: 048
     Dates: end: 2022
  2. RADICAVA [Suspect]
     Active Substance: EDARAVONE
     Indication: Amyotrophic lateral sclerosis
     Dosage: 60 MILLIGRAM, QD 14 DAYS ON THEN 14 DAYS OFF
     Route: 042
     Dates: start: 20220111, end: 20220125
  3. RADICAVA [Suspect]
     Active Substance: EDARAVONE
     Dosage: 60 MILLIGRAM, QD 10 OUR OF 14 DAYS ON, THEN 14 DAYS OFF
     Route: 042
     Dates: start: 2022, end: 202202

REACTIONS (3)
  - Weight decreased [Recovered/Resolved]
  - Abdominal pain [Recovered/Resolved]
  - Nausea [Recovered/Resolved]

NARRATIVE: CASE EVENT DATE: 20220101
